FAERS Safety Report 20928790 (Version 1)
Quarter: 2022Q2

REPORT INFORMATION
  Report Type: Spontaneous
  Country: None (occurrence: DE)
  Receive Date: 20220607
  Receipt Date: 20220607
  Transmission Date: 20220721
  Serious: Yes (Hospitalization, Other)
  Sender: FDA-Public Use
  Company Number: DE-B.Braun Medical Inc.-2129578

PATIENT
  Age: 71 Year
  Sex: Male
  Weight: 100 kg

DRUGS (27)
  1. HEPARIN SODIUM IN DEXTROSE [Suspect]
     Active Substance: HEPARIN SODIUM
     Indication: Pulmonary embolism
     Route: 042
  2. YESCARTA [Suspect]
     Active Substance: AXICABTAGENE CILOLEUCEL
     Route: 042
     Dates: start: 20201130, end: 20201130
  3. Aminomix [Concomitant]
  4. CASPOFUNGIN ACETATE [Concomitant]
     Active Substance: CASPOFUNGIN ACETATE
  5. COTRIMOXAZOLE [Concomitant]
     Active Substance: SULFAMETHOXAZOLE\TRIMETHOPRIM
  6. FLUDARABINE [Concomitant]
     Active Substance: FLUDARABINE PHOSPHATE
  7. LEVOTHYROXINE [Concomitant]
     Active Substance: LEVOTHYROXINE
  8. POTASSIUM [Concomitant]
     Active Substance: POTASSIUM
  9. CHOLECALCIFEROL [Concomitant]
     Active Substance: CHOLECALCIFEROL
  10. SMOFLIPID [Concomitant]
     Active Substance: FISH OIL\MEDIUM-CHAIN TRIGLYCERIDES\OLIVE OIL\SOYBEAN OIL
  11. ACYCLOVIR [Concomitant]
     Active Substance: ACYCLOVIR
  12. PANTOPRAZOLE SODIUM [Concomitant]
     Active Substance: PANTOPRAZOLE SODIUM
  13. CALCIUM [Concomitant]
     Active Substance: CALCIUM
  14. LACTULOSE [Concomitant]
     Active Substance: LACTULOSE
  15. BISOPROLOL. [Concomitant]
     Active Substance: BISOPROLOL FUMARATE
  16. METHYLPREDNISOLONE [Concomitant]
     Active Substance: METHYLPREDNISOLONE
  17. MEROPENEM [Concomitant]
     Active Substance: MEROPENEM
  18. CALCIUM ACETATE\MAGNESIUM ACETATE\POTASSIUM ACETATE\SODIUM ACETATE\SOD [Suspect]
     Active Substance: CALCIUM ACETATE\MAGNESIUM ACETATE\POTASSIUM ACETATE\SODIUM ACETATE\SODIUM CHLORI
  19. CYCLOPHOSPHAMIDE [Concomitant]
     Active Substance: CYCLOPHOSPHAMIDE
  20. QUETIAPINE [Concomitant]
     Active Substance: QUETIAPINE
  21. URAPIDIL [Concomitant]
     Active Substance: URAPIDIL
  22. PANTOZOL [Concomitant]
     Active Substance: PANTOPRAZOLE SODIUM
  23. KEPPRA [Concomitant]
     Active Substance: LEVETIRACETAM
  24. FUROSEMIDE [Concomitant]
     Active Substance: FUROSEMIDE
  25. INSULIN NOS [Concomitant]
     Active Substance: INSULIN NOS
  26. PIPERACILLIN AND TAZOBACTAM [Concomitant]
     Active Substance: PIPERACILLIN SODIUM\TAZOBACTAM SODIUM
  27. VANCOMYCIN HYDROCHLORIDE [Concomitant]
     Active Substance: VANCOMYCIN HYDROCHLORIDE

REACTIONS (17)
  - Sepsis [Unknown]
  - Encephalopathy [None]
  - Retroperitoneal haematoma [Unknown]
  - Cytomegalovirus infection [Unknown]
  - Acute respiratory failure [Unknown]
  - Pneumonia klebsiella [Unknown]
  - Urinary tract infection enterococcal [Unknown]
  - Respiratory disorder [Unknown]
  - Immune effector cell-associated neurotoxicity syndrome [Unknown]
  - Pneumonia aspiration [None]
  - Cytokine release syndrome [Unknown]
  - Retroperitoneal haemorrhage [Unknown]
  - Thrombocytopenia [Unknown]
  - Shock haemorrhagic [None]
  - Large intestinal ulcer haemorrhage [Unknown]
  - Retroperitoneal haemorrhage [Unknown]
  - Acute kidney injury [Unknown]
